FAERS Safety Report 7012446-6 (Version None)
Quarter: 2010Q3

REPORT INFORMATION
  Report Type: 
  Country: None (occurrence: None)
  Receive Date: 20100924
  Receipt Date: 20100920
  Transmission Date: 20110219
  Serious: Yes (Death, Hospitalization)
  Sender: FDA-Public Use
  Company Number: IN-SANOFI-AVENTIS-2010SA056524

PATIENT
  Age: 42 Year
  Sex: Male

DRUGS (2)
  1. RIFAMPICIN [Suspect]
     Indication: LATENT TUBERCULOSIS
  2. ISONIAZID [Suspect]
     Indication: LATENT TUBERCULOSIS

REACTIONS (4)
  - ACUTE HEPATIC FAILURE [None]
  - HEPATIC ENZYME INCREASED [None]
  - HEPATITIS FULMINANT [None]
  - JAUNDICE [None]
